FAERS Safety Report 16787717 (Version 1)
Quarter: 2019Q3

REPORT INFORMATION
  Report Type: Spontaneous
  Country: CA (occurrence: CA)
  Receive Date: 20190909
  Receipt Date: 20190909
  Transmission Date: 20191005
  Serious: Yes (Life-Threatening, Hospitalization, Other)
  Sender: FDA-Public Use
  Company Number: CA-PFIZER INC-2019388979

PATIENT
  Age: 52 Year
  Sex: Male

DRUGS (25)
  1. MORPHINE SULFATE. [Interacting]
     Active Substance: MORPHINE SULFATE
     Dosage: 15 MG, UNK
     Route: 065
  2. MORPHINE [Interacting]
     Active Substance: MORPHINE
     Indication: DEPRESSION
     Dosage: 30 MG, QD
     Route: 048
  3. CIPRALEX [Interacting]
     Active Substance: ESCITALOPRAM OXALATE
     Dosage: 140 MG, UNK
     Route: 048
  4. CIPRALEX [Interacting]
     Active Substance: ESCITALOPRAM OXALATE
     Dosage: 10 MG, UNK
     Route: 065
  5. CITALOPRAM [Interacting]
     Active Substance: CITALOPRAM HYDROBROMIDE
     Indication: DEPRESSION
     Dosage: UNK
     Route: 048
  6. MORPHINE SULFATE. [Interacting]
     Active Substance: MORPHINE SULFATE
     Indication: DEPRESSION
     Dosage: 100 MG, UNK
     Route: 065
  7. MORPHINE SULFATE. [Interacting]
     Active Substance: MORPHINE SULFATE
     Dosage: 9500 MG, UNK
     Route: 065
  8. OXYCODONE [Interacting]
     Active Substance: OXYCODONE
     Indication: SPINAL STENOSIS
     Dosage: 10 MG, UNK
     Route: 065
  9. ZOPICLONE [Interacting]
     Active Substance: ZOPICLONE
     Indication: INSOMNIA
     Dosage: 7.5 MG, UNK
     Route: 065
  10. ALTACE [Suspect]
     Active Substance: RAMIPRIL
     Dosage: UNK
     Route: 065
  11. LORAZEPAM. [Interacting]
     Active Substance: LORAZEPAM
     Dosage: 1 MG, UNK
     Route: 048
  12. OXYCODONE [Interacting]
     Active Substance: OXYCODONE
     Dosage: 20 MG, UNK
     Route: 048
  13. MORPHINE SULFATE. [Interacting]
     Active Substance: MORPHINE SULFATE
     Dosage: UNK
     Route: 065
  14. DIAZEPAM. [Interacting]
     Active Substance: DIAZEPAM
     Indication: SPINAL STENOSIS
     Dosage: 1800 MG, UNK
     Route: 048
  15. CIPRALEX [Interacting]
     Active Substance: ESCITALOPRAM OXALATE
     Indication: DEPRESSION
     Dosage: 10 MG, QD
     Route: 065
  16. ACETAMINOPHEN;OXYCODONE HYDROCHLORIDE [Interacting]
     Active Substance: ACETAMINOPHEN\OXYCODONE HYDROCHLORIDE
     Dosage: UNK
     Route: 048
  17. DIAZEPAM. [Interacting]
     Active Substance: DIAZEPAM
     Indication: SPINAL STENOSIS
     Dosage: 10 MG, UNK
     Route: 065
  18. MORPHINE SULFATE. [Interacting]
     Active Substance: MORPHINE SULFATE
     Indication: SPINAL STENOSIS
     Dosage: 2640 MG, UNK
     Route: 065
  19. MORPHINE SULFATE. [Interacting]
     Active Substance: MORPHINE SULFATE
     Dosage: 420 MG, UNK
     Route: 065
  20. MORPHINE [Interacting]
     Active Substance: MORPHINE
     Indication: SPINAL STENOSIS
     Dosage: 30 MG, UNK
     Route: 048
  21. OXYCODONE [Interacting]
     Active Substance: OXYCODONE
     Dosage: UNK
     Route: 048
  22. ZOPICLONE [Interacting]
     Active Substance: ZOPICLONE
     Dosage: 15 MG, QD
     Route: 048
  23. LORAZEPAM. [Interacting]
     Active Substance: LORAZEPAM
     Indication: INSOMNIA
     Dosage: 30 MG, UNK
     Route: 048
  24. OXYCODONE [Interacting]
     Active Substance: OXYCODONE
     Dosage: UNK
  25. ZOPICLONE [Interacting]
     Active Substance: ZOPICLONE
     Dosage: 187.5 MG, UNK
     Route: 048

REACTIONS (22)
  - Blood pressure decreased [Recovering/Resolving]
  - Electrocardiogram QT prolonged [Recovering/Resolving]
  - Bradycardia [Recovering/Resolving]
  - Hypotension [Recovering/Resolving]
  - Suicide attempt [Recovering/Resolving]
  - Heart rate decreased [Recovering/Resolving]
  - Opiates positive [Recovering/Resolving]
  - Hyperkalaemia [Recovering/Resolving]
  - Drug screen positive [Recovering/Resolving]
  - Blood potassium increased [Recovering/Resolving]
  - Blood creatinine increased [Recovering/Resolving]
  - Drug interaction [Recovering/Resolving]
  - Coma scale abnormal [Recovering/Resolving]
  - Overdose [Recovering/Resolving]
  - Mechanical ventilation [Recovering/Resolving]
  - Electrocardiogram abnormal [Recovering/Resolving]
  - Coma [Recovering/Resolving]
  - Oxygen saturation decreased [Recovering/Resolving]
  - Blood creatine phosphokinase increased [Recovering/Resolving]
  - Loss of consciousness [Recovering/Resolving]
  - Sinus tachycardia [Recovering/Resolving]
  - Intentional overdose [Recovering/Resolving]
